FAERS Safety Report 14996305 (Version 4)
Quarter: 2018Q3

REPORT INFORMATION
  Report Type: Report from Study
  Country: US (occurrence: US)
  Receive Date: 20180611
  Receipt Date: 20180702
  Transmission Date: 20181010
  Serious: Yes (Hospitalization)
  Sender: FDA-Public Use
  Company Number: US-JNJFOC-20180609781

PATIENT
  Age: 71 Year
  Sex: Female

DRUGS (25)
  1. ELIQUIS [Concomitant]
     Active Substance: APIXABAN
     Dosage: 2.5 MG, UNK
  2. LASIX [Concomitant]
     Active Substance: FUROSEMIDE
  3. UROCIT?K [Concomitant]
     Active Substance: POTASSIUM CITRATE
     Dosage: 10 MEQ, (1080) TBER
  4. TYLENOL [Concomitant]
     Active Substance: ACETAMINOPHEN
     Route: 048
  5. TENORMIN [Concomitant]
     Active Substance: ATENOLOL
  6. ZYPREXA [Concomitant]
     Active Substance: OLANZAPINE
  7. ZOLOFT [Concomitant]
     Active Substance: SERTRALINE HYDROCHLORIDE
  8. DULCOLAX NOS [Concomitant]
     Active Substance: BISACODYL OR DOCUSATE SODIUM
     Dosage: NIGHTLY PRN
     Route: 054
  9. DURAGESIC [Concomitant]
     Active Substance: FENTANYL
     Dosage: 25 MCG/HR, EVERY THIRD DAY
  10. NORVASC [Concomitant]
     Active Substance: AMLODIPINE BESYLATE
     Dosage: 2.5 MG, UNK
  11. COLACE [Concomitant]
     Active Substance: DOCUSATE SODIUM
     Dosage: BID, PRN
     Route: 048
  12. MSIR [Concomitant]
     Active Substance: MORPHINE SULFATE
     Indication: PAIN
     Dosage: 2?6 MG
  13. MORPHINE [Concomitant]
     Active Substance: MORPHINE
     Dosage: 5 ML, EVERY TWO HOURS AS NEEDED
     Route: 048
  14. IMBRUVICA [Suspect]
     Active Substance: IBRUTINIB
     Indication: CHRONIC LYMPHOCYTIC LEUKAEMIA
     Route: 048
     Dates: start: 20171117, end: 20180530
  15. SODIUM CHLORIDE. [Concomitant]
     Active Substance: SODIUM CHLORIDE
     Dosage: 0.9% IV FLUS BAG
  16. SODIUM CHLORIDE. [Concomitant]
     Active Substance: SODIUM CHLORIDE
     Dosage: SALINE FLUSH SYRG
  17. KEPPRA [Concomitant]
     Active Substance: LEVETIRACETAM
     Dosage: 100 MG/ML, UNK
  18. TYLENOL [Concomitant]
     Active Substance: ACETAMINOPHEN
     Route: 054
  19. ZYRTEC [Concomitant]
     Active Substance: CETIRIZINE HYDROCHLORIDE
  20. ZESTRIL [Concomitant]
     Active Substance: LISINOPRIL
  21. DULCOLAX NOS [Concomitant]
     Active Substance: BISACODYL OR DOCUSATE SODIUM
     Dosage: NIGHTLY PRN
     Route: 048
  22. ZYLOPRIM [Concomitant]
     Active Substance: ALLOPURINOL
  23. MSIR [Concomitant]
     Active Substance: MORPHINE SULFATE
     Dosage: 15 MG, EVERY THREE HOURS, PRN
     Route: 060
  24. TRANSDERM SCOP [Concomitant]
     Active Substance: SCOPOLAMINE
     Dosage: 1?3 MG
  25. TYLENOL [Concomitant]
     Active Substance: ACETAMINOPHEN

REACTIONS (3)
  - Urinary tract infection [Recovered/Resolved]
  - Haemorrhage intracranial [Recovered/Resolved]
  - Sepsis [Recovered/Resolved]

NARRATIVE: CASE EVENT DATE: 20180530
